FAERS Safety Report 8573949-6 (Version None)
Quarter: 2012Q2

REPORT INFORMATION
  Report Type: 
  Country: None (occurrence: None)
  Receive Date: 20120423
  Receipt Date: 20090720
  Transmission Date: 20120825
  Serious: Yes (Death, Hospitalization)
  Sender: FDA-Public Use
  Company Number: PHEH2007US16067

PATIENT
  Age: 22 Year
  Sex: Female
  Weight: 49 kg

DRUGS (8)
  1. MOTRIN [Concomitant]
  2. DEPO-PROVERA [Concomitant]
  3. LORTAB (HYDOCODONE BITARTRATE, PARACETAMOL) [Concomitant]
  4. IBUPROFEN [Concomitant]
  5. BACLOFEN [Concomitant]
  6. EXJADE [Suspect]
     Indication: SICKLE CELL ANAEMIA
     Dosage: 1500 MG, QD, ORAL
     Route: 048
     Dates: start: 20060805
  7. EXJADE [Suspect]
     Indication: IRON OVERLOAD
     Dosage: 1500 MG, QD, ORAL
     Route: 048
     Dates: start: 20060805
  8. FOLIC ACID [Concomitant]

REACTIONS (13)
  - CARDIO-RESPIRATORY ARREST [None]
  - RED CELL DISTRIBUTION WIDTH INCREASED [None]
  - WHITE BLOOD CELL COUNT INCREASED [None]
  - TACHYCARDIA [None]
  - BACK PAIN [None]
  - PAIN [None]
  - HAEMOGLOBIN DECREASED [None]
  - RED BLOOD CELL COUNT DECREASED [None]
  - SICKLE CELL ANAEMIA WITH CRISIS [None]
  - MYALGIA [None]
  - HAEMOCHROMATOSIS [None]
  - HAEMATOCRIT DECREASED [None]
  - TREATMENT NONCOMPLIANCE [None]
